FAERS Safety Report 7344549-0 (Version None)
Quarter: 2011Q1

REPORT INFORMATION
  Report Type: 
  Country: None (occurrence: None)
  Receive Date: 20110310
  Receipt Date: 20110302
  Transmission Date: 20110831
  Serious: Yes (Other)
  Sender: FDA-Public Use
  Company Number: BE-ASTRAZENECA-2010SE50151

PATIENT
  Age: 35 Year
  Sex: Female
  Weight: 52 kg

DRUGS (2)
  1. MOTILIUM [Concomitant]
     Indication: INFREQUENT BOWEL MOVEMENTS
     Dates: start: 20100101
  2. NEXIUM [Suspect]
     Indication: ABDOMINAL PAIN UPPER
     Route: 048
     Dates: start: 20100101, end: 20101001

REACTIONS (1)
  - HEPATIC ENZYME INCREASED [None]
